FAERS Safety Report 13292936 (Version 1)
Quarter: 2017Q1

REPORT INFORMATION
  Report Type: Spontaneous
  Country: US (occurrence: US)
  Receive Date: 20170303
  Receipt Date: 20170303
  Transmission Date: 20170428
  Serious: Yes (Other)
  Sender: FDA-Public Use
  Company Number: US-TEVA-743926USA

PATIENT
  Sex: Female

DRUGS (5)
  1. COPAXONE [Suspect]
     Active Substance: GLATIRAMER ACETATE
     Indication: MULTIPLE SCLEROSIS
     Route: 058
     Dates: start: 20160119
  2. BUPROPION. [Concomitant]
     Active Substance: BUPROPION
  3. IBUPROFEN. [Concomitant]
     Active Substance: IBUPROFEN
  4. MULTIVITAMIN [Concomitant]
     Active Substance: VITAMINS
  5. SUBOXONE [Concomitant]
     Active Substance: BUPRENORPHINE HYDROCHLORIDE\NALOXONE HYDROCHLORIDE

REACTIONS (3)
  - Injection site reaction [Unknown]
  - Fatigue [Unknown]
  - Weight decreased [Unknown]
